FAERS Safety Report 5761677-1 (Version None)
Quarter: 2008Q2

REPORT INFORMATION
  Report Type: 
  Country: None (occurrence: None)
  Receive Date: 20080602
  Receipt Date: 20080520
  Transmission Date: 20081010
  Serious: Yes (Death)
  Sender: FDA-Public Use
  Company Number: AR_38/08

PATIENT
  Age: 83 Year
  Sex: Female

DRUGS (6)
  1. HICON [Suspect]
     Indication: THYROID CANCER
     Dosage: 100 MCI, ORAL
     Route: 048
     Dates: start: 20080111
  2. HALDOL [Concomitant]
  3. XALATAN [Concomitant]
  4. NEXIUM [Concomitant]
  5. PREDNISONE TAB [Concomitant]
  6. SULFA [Concomitant]

REACTIONS (2)
  - ACUTE RESPIRATORY FAILURE [None]
  - OROPHARYNGEAL SWELLING [None]
